FAERS Safety Report 17440001 (Version 1)
Quarter: 2020Q1

REPORT INFORMATION
  Report Type: Spontaneous
  Country: US (occurrence: US)
  Receive Date: 20200220
  Receipt Date: 20200220
  Transmission Date: 20200409
  Serious: No
  Sender: FDA-Public Use
  Company Number: US-PFIZER INC-2020074486

PATIENT
  Age: 52 Year
  Sex: Female
  Weight: 67.12 kg

DRUGS (2)
  1. ESTRING [Suspect]
     Active Substance: ESTRADIOL
     Indication: VULVOVAGINAL DRYNESS
  2. ESTRING [Suspect]
     Active Substance: ESTRADIOL
     Indication: POSTMENOPAUSE
     Dosage: 2 MG, EVERY 3 MONTHS (2 MG RING INSERTED EVERY 90 DAYS)
     Route: 067
     Dates: start: 2009

REACTIONS (3)
  - Drug ineffective [Not Recovered/Not Resolved]
  - Malaise [Unknown]
  - Fungal infection [Recovered/Resolved]

NARRATIVE: CASE EVENT DATE: 202001
